FAERS Safety Report 5025367-5 (Version None)
Quarter: 2006Q2

REPORT INFORMATION
  Report Type: 
  Country: None (occurrence: None)
  Receive Date: 20060607
  Receipt Date: 20060525
  Transmission Date: 20061013
  Serious: Yes (Other)
  Sender: FDA-Public Use
  Company Number: 163-21880-06050778

PATIENT
  Age: 85 Year
  Sex: Female

DRUGS (4)
  1. REVLIMID [Suspect]
     Indication: MYELODYSPLASTIC SYNDROME
     Dosage: 10 MG, DAILY, ORAL
     Route: 048
     Dates: start: 20060329, end: 20060425
  2. ZOCOR [Concomitant]
  3. DECADRON SRC [Concomitant]
  4. VITAMINS         (VITAMINS) [Concomitant]

REACTIONS (1)
  - THROMBOCYTHAEMIA [None]
